FAERS Safety Report 12090533 (Version 1)
Quarter: 2016Q1

REPORT INFORMATION
  Report Type: Spontaneous
  Country: CZ (occurrence: CZ)
  Receive Date: 20160218
  Receipt Date: 20160218
  Transmission Date: 20160526
  Serious: Yes (Death, Other)
  Sender: FDA-Public Use
  Company Number: CZ-CELGENE-CZE-2016020852

PATIENT

DRUGS (1)
  1. REVLIMID [Suspect]
     Active Substance: LENALIDOMIDE
     Indication: MYELODYSPLASTIC SYNDROME
     Route: 048

REACTIONS (9)
  - Pruritus [Unknown]
  - Dry skin [Unknown]
  - Death [Fatal]
  - Thrombocytopenia [Unknown]
  - Neutropenia [Unknown]
  - Dyspepsia [Unknown]
  - Myelodysplastic syndrome [Unknown]
  - Eczema [Unknown]
  - No therapeutic response [Unknown]
